FAERS Safety Report 4896793-X (Version None)
Quarter: 2006Q1

REPORT INFORMATION
  Report Type: 
  Country: None (occurrence: None)
  Receive Date: 20060126
  Receipt Date: 20060117
  Transmission Date: 20060701
  Serious: Yes (Other)
  Sender: FDA-Public Use
  Company Number: 2005172407

PATIENT
  Age: 33 Year
  Sex: Male
  Weight: 106 kg

DRUGS (2)
  1. DOSTINEX [Suspect]
     Indication: PROLACTINOMA
     Dosage: 0.5 MG, WEEKLY, ORAL
     Route: 048
     Dates: start: 20050225, end: 20051214
  2. MORPHINE SULFATE [Concomitant]

REACTIONS (3)
  - NEPHROTIC SYNDROME [None]
  - RENAL FAILURE [None]
  - THERAPY NON-RESPONDER [None]
